FAERS Safety Report 4876838-3 (Version None)
Quarter: 2005Q4

REPORT INFORMATION
  Report Type: 
  Country: None (occurrence: None)
  Receive Date: 20051206
  Receipt Date: 20050823
  Transmission Date: 20060501
  Serious: No
  Sender: FDA-Public Use
  Company Number: USA0508104532

PATIENT
  Age: 33 Year
  Sex: Female
  Weight: 76.2043 kg

DRUGS (5)
  1. CYMBALTA [Suspect]
     Indication: MAJOR DEPRESSION
     Dosage: 120 MG DAY
     Dates: start: 20050301, end: 20050701
  2. WELLBUTRIN SR [Concomitant]
  3. AVONEX [Concomitant]
  4. DITROPAN XL [Concomitant]
  5. ACYCLOVIR [Concomitant]

REACTIONS (6)
  - ABDOMINAL DISTENSION [None]
  - CONSTIPATION [None]
  - FEELING JITTERY [None]
  - HYPERHIDROSIS [None]
  - TEMPERATURE REGULATION DISORDER [None]
  - WEIGHT INCREASED [None]
